FAERS Safety Report 5888247-9 (Version None)
Quarter: 2008Q3

REPORT INFORMATION
  Report Type: 
  Country: None (occurrence: None)
  Receive Date: 20080918
  Receipt Date: 20080915
  Transmission Date: 20090109
  Serious: Yes (Hospitalization, Other)
  Sender: FDA-Public Use
  Company Number: FR-GENENTECH-256879

PATIENT
  Sex: Male

DRUGS (16)
  1. EFALIZUMAB [Suspect]
     Indication: PSORIASIS
     Dosage: 1 ML, 1/WEEK
     Route: 058
     Dates: start: 20061001, end: 20080210
  2. EFALIZUMAB [Suspect]
     Dosage: UNK
     Dates: start: 20080326, end: 20080401
  3. EFALIZUMAB [Suspect]
     Dosage: UNK
     Dates: start: 20080401, end: 20080805
  4. GLIBOMET [Concomitant]
     Indication: DIABETES MELLITUS
     Dosage: 2 TABLET, TID
     Route: 048
     Dates: start: 20050101
  5. FUROSEMIDE [Concomitant]
     Indication: HYPERTENSION
     Dosage: UNK, UNK
     Route: 048
     Dates: start: 19940401
  6. PRAVASTATIN [Concomitant]
     Indication: HYPERTRIGLYCERIDAEMIA
     Dosage: UNK, UNK
     Dates: start: 19940401
  7. PRAVASTATIN [Concomitant]
     Indication: THROMBOSIS PROPHYLAXIS
  8. INSULIN GLARGINE [Concomitant]
     Indication: DIABETES MELLITUS
     Dosage: UNK, QD
     Dates: start: 20050101
  9. PLAVIX [Concomitant]
     Indication: PROPHYLAXIS
     Dosage: UNK, QD
     Route: 048
     Dates: start: 19940401
  10. VERAPAMIL HYDROCHLORIDE [Concomitant]
     Indication: PROPHYLAXIS
     Dosage: UNK, UNK
     Route: 048
     Dates: start: 19940401
  11. RAMIPRIL [Concomitant]
     Indication: HYPERTENSION
     Dosage: 10 MG, QD
     Route: 048
     Dates: start: 19940401
  12. BISOPROLOL FUMARATE [Concomitant]
     Indication: HYPERTENSION
     Dosage: UNK
     Route: 048
     Dates: start: 20080201
  13. INSULIN LISPRO [Concomitant]
     Indication: DIABETES MELLITUS
     Dosage: UNK
     Route: 058
     Dates: start: 20080201
  14. OMEGA-3 MARINE TRIGLYCERIDES [Concomitant]
     Indication: ANGINA PECTORIS
     Dosage: UNK
     Route: 048
     Dates: start: 20080201
  15. ATORVASTATIN CALCIUM [Concomitant]
     Indication: HYPERCHOLESTEROLAEMIA
     Dosage: UNK
     Route: 048
     Dates: start: 20080201
  16. ASPIRIN [Concomitant]
     Indication: THROMBOSIS PROPHYLAXIS
     Dosage: UNK
     Route: 048
     Dates: start: 20080201

REACTIONS (2)
  - ANGINA PECTORIS [None]
  - PULMONARY OEDEMA [None]
